FAERS Safety Report 13503239 (Version 1)
Quarter: 2017Q2

REPORT INFORMATION
  Report Type: Spontaneous
  Country: US (occurrence: US)
  Receive Date: 20170501
  Receipt Date: 20170501
  Transmission Date: 20170830
  Serious: Yes (Hospitalization)
  Sender: FDA-Public Use
  Company Number: None

PATIENT
  Age: 70 Year
  Sex: Male

DRUGS (1)
  1. CLOPIDOGREL [Suspect]
     Active Substance: CLOPIDOGREL BISULFATE
     Indication: CORONARY ARTERIAL STENT INSERTION
     Route: 048
     Dates: start: 20151009, end: 20170427

REACTIONS (4)
  - Vascular stent thrombosis [None]
  - Acute myocardial infarction [None]
  - Treatment failure [None]
  - Brain natriuretic peptide increased [None]

NARRATIVE: CASE EVENT DATE: 20170427
